FAERS Safety Report 7659008-5 (Version None)
Quarter: 2011Q3

REPORT INFORMATION
  Report Type: 
  Country: None (occurrence: None)
  Receive Date: 20110805
  Receipt Date: 20110726
  Transmission Date: 20111222
  Serious: Yes (Hospitalization)
  Sender: FDA-Public Use
  Company Number: AU-ELI_LILLY_AND_COMPANY-AU201107007783

PATIENT
  Sex: Male
  Weight: 79 kg

DRUGS (14)
  1. SUSTAGEN [Concomitant]
     Indication: WEIGHT DECREASED
     Dosage: UNK
     Dates: start: 20110301
  2. OXYCODONE HYDROCHLORIDE [Concomitant]
     Indication: ABDOMINAL PAIN
     Dosage: UNK
     Dates: start: 20110317
  3. GRANISETRON [Concomitant]
     Indication: PROPHYLAXIS
     Dosage: UNK
     Route: 042
     Dates: start: 20110323
  4. DIAZEPAM [Concomitant]
     Indication: SLEEP DISORDER
     Dosage: UNK
     Route: 048
     Dates: start: 20110327
  5. PACLITAXEL [Suspect]
     Indication: PANCREATIC CARCINOMA METASTATIC
     Dosage: 125 MG/M2, OTHER
     Dates: start: 20110323
  6. CIPROFLAXACIN [Concomitant]
     Indication: PYREXIA
     Dosage: UNK
     Dates: start: 20110617
  7. ACETAMINOPHEN [Concomitant]
     Indication: PYREXIA
     Dosage: UNK
     Dates: start: 20110318
  8. GEMCITABINE HYDROCHLORIDE [Suspect]
     Indication: PANCREATIC CARCINOMA METASTATIC
     Dosage: 1000 MG/M2, OTHER
     Dates: start: 20110323
  9. CETIRIZINE HCL [Concomitant]
     Indication: RASH GENERALISED
     Dosage: UNK
     Dates: start: 20110304
  10. DIHYDROCODEINE BITARTRATE [Concomitant]
     Indication: COUGH
     Dosage: UNK
     Route: 048
     Dates: start: 20110505
  11. DEXAMETHASONE [Concomitant]
     Indication: PROPHYLAXIS
     Dosage: UNK
     Dates: start: 20110323
  12. FERROUS SULFATE TAB [Concomitant]
     Dosage: UNK
     Route: 048
     Dates: start: 20110616, end: 20110618
  13. FISH OIL [Concomitant]
     Indication: PROPHYLAXIS
     Dosage: UNK
     Route: 048
     Dates: start: 20110516
  14. METOCLOPRAMIDE [Concomitant]
     Indication: VOMITING
     Dosage: UNK
     Route: 048
     Dates: start: 20110323

REACTIONS (1)
  - DEHYDRATION [None]
